FAERS Safety Report 15196861 (Version 1)
Quarter: 2018Q3

REPORT INFORMATION
  Report Type: Spontaneous
  Country: US (occurrence: US)
  Receive Date: 20180626
  Receipt Date: 20180626
  Transmission Date: 20181010
  Serious: Yes (Disabling, Other)
  Sender: FDA-Public Use
  Company Number: None

PATIENT
  Age: 35 Year
  Sex: Female
  Weight: 53.1 kg

DRUGS (2)
  1. ENDARI [Suspect]
     Active Substance: GLUTAMINE
     Indication: SICKLE CELL DISEASE
     Dosage: ?          QUANTITY:2 PACKETS;?
     Route: 048
     Dates: start: 20180409, end: 20180530
  2. IRON [Concomitant]
     Active Substance: IRON

REACTIONS (4)
  - Condition aggravated [None]
  - Abdominal pain [None]
  - Sickle cell disease [None]
  - Weight increased [None]

NARRATIVE: CASE EVENT DATE: 20180501
